FAERS Safety Report 6474551-2 (Version None)
Quarter: 2009Q4

REPORT INFORMATION
  Report Type: 
  Country: None (occurrence: None)
  Receive Date: 20091204
  Receipt Date: 20091130
  Transmission Date: 20100525
  Serious: Yes (Hospitalization)
  Sender: FDA-Public Use
  Company Number: BR-BAYER-200922374LA

PATIENT
  Age: 54 Year
  Sex: Female

DRUGS (8)
  1. BETAFERON [Suspect]
     Indication: SECONDARY PROGRESSIVE MULTIPLE SCLEROSIS
     Dosage: TOTAL DAILY DOSE: 8 MIU
     Route: 058
     Dates: start: 20010101
  2. SERTRALINE HCL [Concomitant]
     Indication: DEPRESSION
     Dosage: TOTAL DAILY DOSE: 50 MG
     Route: 048
     Dates: start: 20080818
  3. AZATHIOPRINE [Concomitant]
     Indication: MULTIPLE SCLEROSIS
     Dosage: AS USED: 3 DF
     Route: 048
     Dates: start: 20050101
  4. CLORANA [Concomitant]
     Indication: HYPERTENSION
     Dosage: TOTAL DAILY DOSE: 1 DF
     Route: 048
     Dates: start: 20000101
  5. ENALAPRIL [Concomitant]
     Indication: HYPERTENSION
     Dosage: TOTAL DAILY DOSE: 10 MG
     Route: 048
     Dates: start: 20090801
  6. CAPTOPRIL [Concomitant]
     Indication: HYPERTENSION
     Dosage: TOTAL DAILY DOSE: 2 DF
     Route: 048
     Dates: start: 20020101, end: 20090801
  7. AMITRIPTYLINE [Concomitant]
     Indication: DEPRESSION
     Dosage: AS USED: 1 DF
     Route: 048
     Dates: start: 20010101, end: 20090901
  8. SIMVASTATIN [Concomitant]
     Indication: BLOOD CHOLESTEROL INCREASED
     Dosage: TOTAL DAILY DOSE: 1 DF
     Route: 048
     Dates: start: 20090801, end: 20091001

REACTIONS (11)
  - BACK PAIN [None]
  - CHEST PAIN [None]
  - FALL [None]
  - HEADACHE [None]
  - INJECTION SITE PAIN [None]
  - INSOMNIA [None]
  - MUSCULAR WEAKNESS [None]
  - MUSCULOSKELETAL CHEST PAIN [None]
  - PYREXIA [None]
  - RIB FRACTURE [None]
  - URINARY INCONTINENCE [None]
